FAERS Safety Report 12358117 (Version 1)
Quarter: 2016Q2

REPORT INFORMATION
  Report Type: Spontaneous
  Country: US (occurrence: None)
  Receive Date: 20160511
  Receipt Date: 20160511
  Transmission Date: 20160815
  Serious: No
  Sender: FDA-Public Use
  Company Number: None

PATIENT
  Sex: Female

DRUGS (1)
  1. COPAXONE [Suspect]
     Active Substance: GLATIRAMER ACETATE
     Indication: MULTIPLE SCLEROSIS
     Route: 058

REACTIONS (7)
  - Fatigue [None]
  - Injection site bruising [None]
  - Injection site swelling [None]
  - Night sweats [None]
  - Hot flush [None]
  - Injection site reaction [None]
  - Chills [None]
